FAERS Safety Report 10096606 (Version 1)
Quarter: 2014Q2

REPORT INFORMATION
  Report Type: Spontaneous
  Country: US (occurrence: None)
  Receive Date: 20140421
  Receipt Date: 20140421
  Transmission Date: 20141212
  Serious: Yes (Other)
  Sender: FDA-Public Use
  Company Number: None

PATIENT
  Age: 26 Year
  Sex: Female

DRUGS (4)
  1. LUNESTA [Suspect]
     Indication: INSOMNIA
     Dosage: 1/2 TO 1 TAB, QHS/BEDTIME, ORAL
     Route: 048
     Dates: start: 20140311, end: 20140313
  2. LOESTRIN FE [Concomitant]
  3. IBUPROFEN [Concomitant]
  4. CYCLOBENZAPRINE [Concomitant]

REACTIONS (3)
  - Suicidal ideation [None]
  - Paradoxical drug reaction [None]
  - Poor quality sleep [None]
